FAERS Safety Report 22724797 (Version 5)
Quarter: 2023Q4

REPORT INFORMATION
  Report Type: Report from Study
  Country: US (occurrence: US)
  Receive Date: 20230719
  Receipt Date: 20231120
  Transmission Date: 20240109
  Serious: Yes (Other)
  Sender: FDA-Public Use
  Company Number: US-UCBSA-2023015815

PATIENT
  Sex: Female

DRUGS (5)
  1. CERTOLIZUMAB PEGOL [Suspect]
     Active Substance: CERTOLIZUMAB PEGOL
     Indication: Axial spondyloarthritis
     Dosage: 200 MILLIGRAM, EV 2 WEEKS(QOW)
     Route: 058
     Dates: start: 20230327
  2. CERTOLIZUMAB PEGOL [Suspect]
     Active Substance: CERTOLIZUMAB PEGOL
     Dosage: 400 MG (2X200 MG/ML) EV 2 WEEKS(QOW)
     Route: 058
     Dates: start: 2023
  3. CERTOLIZUMAB PEGOL [Suspect]
     Active Substance: CERTOLIZUMAB PEGOL
     Dosage: 200 MILLIGRAM, EV 2 WEEKS(QOW)
     Route: 058
     Dates: start: 202306
  4. METFORMIN [Concomitant]
     Active Substance: METFORMIN HYDROCHLORIDE
     Indication: Product used for unknown indication
     Dosage: UNK
  5. WEGOVY [Concomitant]
     Active Substance: SEMAGLUTIDE
     Indication: Weight decreased
     Dosage: UNK
     Dates: start: 202306

REACTIONS (17)
  - Urinary tract infection [Not Recovered/Not Resolved]
  - Axial spondyloarthritis [Unknown]
  - Injection site discomfort [Recovering/Resolving]
  - Injection site pain [Not Recovered/Not Resolved]
  - Diarrhoea [Recovering/Resolving]
  - Fear of injection [Recovering/Resolving]
  - Discomfort [Recovering/Resolving]
  - Injection site vesicles [Recovering/Resolving]
  - Fatigue [Not Recovered/Not Resolved]
  - Injection site discolouration [Not Recovered/Not Resolved]
  - Skin discolouration [Recovered/Resolved]
  - Incorrect dose administered [Unknown]
  - Loss of personal independence in daily activities [Not Recovered/Not Resolved]
  - Wrong technique in product usage process [Unknown]
  - Product quality issue [Unknown]
  - Product dose omission issue [Unknown]
  - Inappropriate schedule of product administration [Unknown]

NARRATIVE: CASE EVENT DATE: 20230101
